FAERS Safety Report 5676214-X (Version None)
Quarter: 2008Q1

REPORT INFORMATION
  Report Type: 
  Country: None (occurrence: None)
  Receive Date: 20080321
  Receipt Date: 20080310
  Transmission Date: 20080703
  Serious: Yes (Hospitalization)
  Sender: FDA-Public Use
  Company Number: FR-GENENTECH-257880

PATIENT
  Sex: Male
  Weight: 80 kg

DRUGS (12)
  1. RITUXIMAB [Suspect]
     Indication: B-CELL LYMPHOMA
     Dosage: 739 MG, QD
     Route: 042
     Dates: start: 20080212
  2. RITUXIMAB [Suspect]
     Dosage: 990 MG, QD
     Route: 042
     Dates: start: 20080226
  3. FLUDARABINE [Suspect]
     Indication: B-CELL LYMPHOMA
     Dosage: 79 MG, QD
     Route: 048
     Dates: start: 20080214
  4. CYCLOPHOSPHAMIDE [Suspect]
     Indication: B-CELL LYMPHOMA
     Dosage: 500 MG, QD
     Route: 048
     Dates: start: 20080214
  5. KARDEGIC [Concomitant]
     Indication: DRUG USE FOR UNKNOWN INDICATION
  6. VALACYCLOVIR [Concomitant]
     Indication: DRUG USE FOR UNKNOWN INDICATION
  7. TAREG [Concomitant]
     Indication: DRUG USE FOR UNKNOWN INDICATION
  8. SIMVASTATIN [Concomitant]
     Indication: DRUG USE FOR UNKNOWN INDICATION
  9. XATRAL [Concomitant]
     Indication: DRUG USE FOR UNKNOWN INDICATION
  10. BACTRIM [Concomitant]
     Indication: DRUG USE FOR UNKNOWN INDICATION
  11. DUPHALAC [Concomitant]
     Indication: DRUG USE FOR UNKNOWN INDICATION
  12. VANCOMYCIN HCL [Concomitant]
     Indication: DRUG USE FOR UNKNOWN INDICATION
     Dates: start: 20080305

REACTIONS (1)
  - FEBRILE NEUTROPENIA [None]
